FAERS Safety Report 5031880-7 (Version None)
Quarter: 2006Q2

REPORT INFORMATION
  Report Type: 
  Country: None (occurrence: None)
  Receive Date: 20060621
  Receipt Date: 20051121
  Transmission Date: 20061013
  Serious: Yes (Hospitalization)
  Sender: FDA-Public Use
  Company Number: FR-BOEHRINGER INGELHEIM PHARMACEUTICALS, INC.-2005-FF-00854FF

PATIENT
  Sex: Male
  Weight: 65 kg

DRUGS (4)
  1. TIPRANAVIR + RITONAVIR CO-ADMIN [Suspect]
     Indication: HIV INFECTION
     Dosage: TPV/RTV: 500/200 MG B.I.D.
     Route: 048
     Dates: start: 20040106, end: 20051025
  2. SUSTIVA [Concomitant]
     Indication: HIV INFECTION
     Route: 048
     Dates: start: 20040106, end: 20051025
  3. TRIZIVIR [Concomitant]
     Indication: HIV INFECTION
     Dosage: 2 TABLETS DAILY
     Route: 048
     Dates: start: 20040106, end: 20050916
  4. COMBIVIR [Concomitant]
     Indication: HIV INFECTION
     Dosage: 2 TABLETS DAILY
     Route: 048
     Dates: start: 20050916

REACTIONS (4)
  - DRUG INEFFECTIVE [None]
  - LICHENOID KERATOSIS [None]
  - PANCYTOPENIA [None]
  - PRURIGO [None]
